FAERS Safety Report 8206616-9 (Version None)
Quarter: 2012Q1

REPORT INFORMATION
  Report Type: 
  Country: None (occurrence: None)
  Receive Date: 20120314
  Receipt Date: 20120305
  Transmission Date: 20120608
  Serious: Yes (Hospitalization, Other)
  Sender: FDA-Public Use
  Company Number: US-BRISTOL-MYERS SQUIBB COMPANY-16417727

PATIENT
  Age: 77 Year
  Sex: Female
  Weight: 54 kg

DRUGS (1)
  1. YERVOY [Suspect]
     Dosage: 1DF:3 DOSES

REACTIONS (3)
  - GENERAL PHYSICAL HEALTH DETERIORATION [None]
  - METASTASES TO EYE [None]
  - ENTEROCOLITIS [None]
